FAERS Safety Report 7491756-2 (Version None)
Quarter: 2011Q2

REPORT INFORMATION
  Report Type: 
  Country: None (occurrence: None)
  Receive Date: 20110512
  Receipt Date: 20110427
  Transmission Date: 20111010
  Serious: Yes (Other)
  Sender: FDA-Public Use
  Company Number: 026702

PATIENT
  Sex: Male

DRUGS (1)
  1. CIMZIA [Suspect]
     Indication: CROHN'S DISEASE
     Dosage: (SUBCUTANEOUS)
     Route: 058
     Dates: start: 20081101, end: 20110115

REACTIONS (4)
  - POOR QUALITY SLEEP [None]
  - FATIGUE [None]
  - DIARRHOEA [None]
  - CARDIAC OPERATION [None]
